FAERS Safety Report 25314720 (Version 1)
Quarter: 2025Q2

REPORT INFORMATION
  Report Type: Report from Study
  Country: US (occurrence: US)
  Receive Date: 20250514
  Receipt Date: 20250514
  Transmission Date: 20250716
  Serious: Yes (Other)
  Sender: PFIZER
  Company Number: US-PFIZER INC-202500100557

PATIENT
  Age: 68 Year
  Sex: Female

DRUGS (22)
  1. BRAFTOVI [Suspect]
     Active Substance: ENCORAFENIB
     Indication: Colon cancer
     Dosage: 300 MG, 1X/DAY
     Route: 048
     Dates: start: 20250430, end: 20250505
  2. ALBUTEROL SULFATE [Concomitant]
     Active Substance: ALBUTEROL SULFATE
  3. AMLODIPINE [Concomitant]
     Active Substance: AMLODIPINE BESYLATE
  4. ASPIRIN [Concomitant]
     Active Substance: ASPIRIN
  5. ATENOLOL [Concomitant]
     Active Substance: ATENOLOL
  6. ATORVASTATIN [Concomitant]
     Active Substance: ATORVASTATIN
  7. AZITHROMYCIN [Concomitant]
     Active Substance: AZITHROMYCIN
  8. CALCIUM CITRATE\CHOLECALCIFEROL [Concomitant]
     Active Substance: CALCIUM CITRATE\CHOLECALCIFEROL
  9. GABAPENTIN [Concomitant]
     Active Substance: GABAPENTIN
  10. LEVOTHYROXINE [Concomitant]
     Active Substance: LEVOTHYROXINE
  11. LIDOCAINE [Concomitant]
     Active Substance: LIDOCAINE
  12. LOPERAMIDE [Concomitant]
     Active Substance: LOPERAMIDE
  13. LORATADINE [Concomitant]
     Active Substance: LORATADINE
  14. LOSARTAN [Concomitant]
     Active Substance: LOSARTAN
  15. MELOXICAM [Concomitant]
     Active Substance: MELOXICAM
  16. METFORMIN [Concomitant]
     Active Substance: METFORMIN HYDROCHLORIDE
  17. MUCINEX [Concomitant]
     Active Substance: GUAIFENESIN
  18. PROCHLORPERAZINE [Concomitant]
     Active Substance: PROCHLORPERAZINE
  19. STOOL SOFTENER (DOCUSATE) [Concomitant]
     Active Substance: DOCUSATE
  20. TRELEGY ELLIPTA [Concomitant]
     Active Substance: FLUTICASONE FUROATE\UMECLIDINIUM BROMIDE\VILANTEROL TRIFENATATE
  21. TYLENOL EXTRA STRENGTH [Concomitant]
     Active Substance: ACETAMINOPHEN
  22. PRILOCAINE [Concomitant]
     Active Substance: PRILOCAINE

REACTIONS (4)
  - Neuropathy peripheral [Recovering/Resolving]
  - Upper respiratory tract infection [Recovered/Resolved]
  - Vomiting [Recovering/Resolving]
  - Nausea [Recovering/Resolving]
